FAERS Safety Report 6453286-6 (Version None)
Quarter: 2009Q4

REPORT INFORMATION
  Report Type: 
  Country: None (occurrence: None)
  Receive Date: 20091123
  Receipt Date: 20091123
  Transmission Date: 20100525
  Serious: Yes (Death)
  Sender: FDA-Public Use
  Company Number: None

PATIENT
  Age: 22 Year
  Sex: Male
  Weight: 99.7913 kg

DRUGS (2)
  1. ZOLOFT [Suspect]
     Indication: ANXIETY
     Dosage: .25MGS ONCE DAILY PO
     Route: 048
     Dates: start: 20091002, end: 20091022
  2. ZOLOFT [Suspect]
     Indication: DEPRESSION
     Dosage: .25MGS ONCE DAILY PO
     Route: 048
     Dates: start: 20091002, end: 20091022

REACTIONS (1)
  - COMPLETED SUICIDE [None]
